FAERS Safety Report 8146733-5 (Version None)
Quarter: 2012Q1

REPORT INFORMATION
  Report Type: 
  Country: None (occurrence: None)
  Receive Date: 20120217
  Receipt Date: 20110609
  Transmission Date: 20120608
  Serious: No
  Sender: FDA-Public Use
  Company Number: US-ABBOTT-11P-163-0731378-00

PATIENT
  Sex: Female
  Weight: 85.806 kg

DRUGS (1)
  1. SIMCOR [Suspect]
     Indication: PRODUCT USED FOR UNKNOWN INDICATION
     Dosage: 500/20 MG
     Dates: start: 20110602, end: 20110605

REACTIONS (4)
  - ERYTHEMA [None]
  - PRURITUS [None]
  - FEELING HOT [None]
  - EYE IRRITATION [None]
